FAERS Safety Report 7133107-9 (Version None)
Quarter: 2010Q4

REPORT INFORMATION
  Report Type: 
  Country: None (occurrence: None)
  Receive Date: 20101202
  Receipt Date: 20101122
  Transmission Date: 20110411
  Serious: Yes (Life-Threatening, Hospitalization)
  Sender: FDA-Public Use
  Company Number: IT-EISAI INC.-E7389-01053-CLI-IT

PATIENT
  Sex: Male
  Weight: 70 kg

DRUGS (28)
  1. E7389 (BOLD) [Suspect]
     Indication: NON-SMALL CELL LUNG CANCER
     Route: 041
     Dates: start: 20101027
  2. PEMETREXED [Suspect]
     Indication: NON-SMALL CELL LUNG CANCER
     Route: 011
     Dates: start: 20101007
  3. TACHIDOL [Concomitant]
     Indication: PAIN
     Dates: start: 20100928
  4. SOLDESAM [Concomitant]
     Indication: SUPPORTIVE CARE
     Route: 048
     Dates: start: 20100928
  5. FOLINGRAV [Concomitant]
     Route: 048
     Dates: start: 20100928
  6. CO-EFFERALGAN [Concomitant]
     Indication: PAIN
     Route: 048
     Dates: start: 20100928
  7. SALBUTOMALO SULPHATE [Concomitant]
     Dates: start: 20100928
  8. LORAZEPAM [Concomitant]
     Indication: PROPHYLAXIS
     Route: 048
     Dates: start: 20100928
  9. PREDNISONE [Concomitant]
     Indication: LYMPHANGITIS
     Route: 048
     Dates: start: 20100928, end: 20101021
  10. OMEPRAZOLE [Concomitant]
     Indication: PROPHYLAXIS
     Route: 048
     Dates: start: 20100928
  11. LEVOFLOXACIN [Concomitant]
     Indication: INFECTION PROPHYLAXIS
     Route: 048
     Dates: start: 20100928, end: 20101014
  12. CARDIAZOL-PARACODINA [Concomitant]
     Indication: COUGH
     Route: 048
     Dates: start: 20100928
  13. LASIX [Concomitant]
     Dates: start: 20101001
  14. TRANEXAMIC ACID [Concomitant]
     Indication: HAEMOPTYSIS
     Dates: start: 20101028
  15. TRANEXAMIC ACID [Concomitant]
     Route: 048
     Dates: start: 20101004, end: 20101006
  16. MYCOSTATIN [Concomitant]
     Dates: start: 20101021
  17. ENOXAPARINA SODICA [Concomitant]
     Route: 058
     Dates: start: 20101021
  18. PARACETAMOLO [Concomitant]
     Indication: PAIN
     Dates: start: 20101021, end: 20101021
  19. KETOROLAC TROMETHAMINE [Concomitant]
     Dates: start: 20101021, end: 20101021
  20. CLEXANE [Concomitant]
     Indication: THROMBOSIS
     Route: 058
     Dates: start: 20101028
  21. CHLORIDRATE SERTRALINE [Concomitant]
     Indication: DEPRESSION
     Route: 048
     Dates: start: 20101028
  22. CALCIUM [Concomitant]
     Indication: CALCIUM DEFICIENCY
     Route: 048
     Dates: start: 20101007, end: 20101007
  23. GRANISETRON HCL [Concomitant]
     Route: 041
  24. RANITIDINE [Concomitant]
     Indication: PROPHYLAXIS
     Route: 041
  25. MORPHINE [Concomitant]
     Route: 058
     Dates: start: 20101002, end: 20101013
  26. MORPHINE [Concomitant]
     Indication: PAIN
  27. OXYGEN [Concomitant]
     Route: 055
     Dates: start: 20101001, end: 20101013
  28. VOLUVEN [Concomitant]
     Indication: HYPOTENSION
     Route: 041
     Dates: start: 20101103, end: 20101103

REACTIONS (2)
  - ABDOMINAL PAIN [None]
  - ALANINE AMINOTRANSFERASE INCREASED [None]
